FAERS Safety Report 17871606 (Version 1)
Quarter: 2020Q2

REPORT INFORMATION
  Report Type: Spontaneous
  Country: US (occurrence: US)
  Receive Date: 20200605
  Receipt Date: 20200605
  Transmission Date: 20200714
  Serious: No
  Sender: FDA-Public Use
  Company Number: None

PATIENT
  Age: 72 Year
  Sex: Female

DRUGS (1)
  1. AMBRISENTAN 5MG [MYLAN] [Suspect]
     Active Substance: AMBRISENTAN
     Route: 048
     Dates: start: 201910

REACTIONS (2)
  - Hypotension [None]
  - Cardiomyopathy [None]

NARRATIVE: CASE EVENT DATE: 20200605
